FAERS Safety Report 6907041-0 (Version None)
Quarter: 2010Q3

REPORT INFORMATION
  Report Type: 
  Country: None (occurrence: None)
  Receive Date: 20100804
  Receipt Date: 20080731
  Transmission Date: 20110219
  Serious: Yes (Other)
  Sender: FDA-Public Use
  Company Number: US-PFIZER INC-2008064561

PATIENT
  Sex: Female

DRUGS (3)
  1. NARDIL [Suspect]
     Indication: PANIC DISORDER
  2. NARDIL [Suspect]
     Indication: DEPRESSION
     Dates: end: 20080101
  3. ANTIHISTAMINES [Concomitant]

REACTIONS (3)
  - JOINT SWELLING [None]
  - SOMNOLENCE [None]
  - WEIGHT INCREASED [None]
